FAERS Safety Report 4659648-1 (Version None)
Quarter: 2005Q2

REPORT INFORMATION
  Report Type: 
  Country: None (occurrence: None)
  Receive Date: 20050411
  Receipt Date: 20041222
  Transmission Date: 20051028
  Serious: Yes (Hospitalization)
  Sender: FDA-Public Use
  Company Number: A03200404334

PATIENT
  Age: 54 Year
  Sex: Male
  Weight: 90.7194 kg

DRUGS (3)
  1. UROXATRAL [Suspect]
     Indication: PROSTATISM
     Dosage: 10 MG OD - ORAL
     Route: 048
     Dates: start: 20040601, end: 20041001
  2. BETA-BLOCKER [Suspect]
     Indication: HYPERTENSION
  3. ANGIOTENSIN RECEPTOR BLOCKER [Suspect]
     Indication: HYPERTENSION

REACTIONS (3)
  - ORTHOSTATIC HYPOTENSION [None]
  - SKIN LACERATION [None]
  - SYNCOPE [None]
